FAERS Safety Report 4347565-6 (Version None)
Quarter: 2004Q2

REPORT INFORMATION
  Report Type: 
  Country: None (occurrence: None)
  Receive Date: 20040422
  Receipt Date: 20040408
  Transmission Date: 20050107
  Serious: Yes (Other)
  Sender: FDA-Public Use
  Company Number: 002#1#2004-00027

PATIENT
  Age: 78 Year
  Sex: Male

DRUGS (1)
  1. EDEX [Suspect]
     Indication: ERECTILE DYSFUNCTION
     Dosage: 40MCG,LASNEC,INTRACAVERNOUS
     Route: 017
     Dates: start: 20010701, end: 20031201

REACTIONS (5)
  - NIGHT SWEATS [None]
  - PENILE INFECTION [None]
  - PHARMACEUTICAL PRODUCT COMPLAINT [None]
  - PURULENT DISCHARGE [None]
  - TENDERNESS [None]
